FAERS Safety Report 17424144 (Version 2)
Quarter: 2020Q2

REPORT INFORMATION
  Report Type: Spontaneous
  Country: US (occurrence: US)
  Receive Date: 20200217
  Receipt Date: 20200511
  Transmission Date: 20200713
  Serious: No
  Sender: FDA-Public Use
  Company Number: US-AUROBINDO-AUR-APL-2020-004287

PATIENT
  Age: 51 Year
  Sex: Female
  Weight: 92 kg

DRUGS (2)
  1. OLMESARTAN MEDOXOMIL+HYDROCHLOROTHIAZIDE TABLETS 40MG/12.5MG [Suspect]
     Active Substance: HYDROCHLOROTHIAZIDE\OLMESARTAN MEDOXOMIL
     Indication: HYPERTENSION
     Dosage: 1 DOSAGE FORM, ONCE A DAY
     Route: 065
  2. OLMESARTAN MEDOXOMIL+HYDROCHLOROTHIAZIDE TABLETS 40MG/12.5MG [Suspect]
     Active Substance: HYDROCHLOROTHIAZIDE\OLMESARTAN MEDOXOMIL
     Dosage: 1 DOSAGE FORM, ONCE A DAY
     Route: 065
     Dates: start: 20200115, end: 20200119

REACTIONS (4)
  - Blood pressure increased [Recovered/Resolved]
  - Product odour abnormal [Unknown]
  - Headache [Recovered/Resolved]
  - Nausea [Recovered/Resolved]

NARRATIVE: CASE EVENT DATE: 20200115
